FAERS Safety Report 5872888-9 (Version None)
Quarter: 2008Q3

REPORT INFORMATION
  Report Type: 
  Country: None (occurrence: None)
  Receive Date: 20080905
  Receipt Date: 20080825
  Transmission Date: 20090109
  Serious: Yes (Other)
  Sender: FDA-Public Use
  Company Number: US-PFIZER INC-2008063306

PATIENT
  Sex: Male
  Weight: 118 kg

DRUGS (5)
  1. LYRICA [Suspect]
     Indication: FIBROMYALGIA
  2. LYRICA [Suspect]
     Indication: PAIN
  3. MORPHINE [Concomitant]
  4. MS CONTIN [Concomitant]
  5. LORTAB [Concomitant]

REACTIONS (3)
  - GINGIVAL GRAFT [None]
  - PAIN [None]
  - TOOTH EXTRACTION [None]
